FAERS Safety Report 6011494-2 (Version None)
Quarter: 2008Q4

REPORT INFORMATION
  Report Type: 
  Country: None (occurrence: None)
  Receive Date: 20081218
  Receipt Date: 19980308
  Transmission Date: 20090506
  Serious: Yes (Death, Hospitalization)
  Sender: FDA-Public Use
  Company Number: CA-ROCHE-68492

PATIENT
  Sex: Male

DRUGS (7)
  1. SAQUINAVIR [Suspect]
     Indication: HIV INFECTION
     Route: 048
     Dates: start: 19940612, end: 19960720
  2. SAQUINAVIR [Suspect]
     Dosage: DRUG TAKEN IN PREVIOUS STUDY.
     Route: 048
  3. 3TC [Concomitant]
     Indication: HIV INFECTION
     Route: 048
  4. SEPTRA [Concomitant]
     Route: 048
  5. DIFLUCAN [Concomitant]
     Indication: CANDIDIASIS
     Route: 048
  6. ACYCLOVIR [Concomitant]
     Indication: HERPES SIMPLEX
     Route: 048
  7. TETRACYCLINE [Concomitant]
     Indication: FOLLICULITIS
     Route: 048

REACTIONS (6)
  - DEATH [None]
  - KAPOSI'S SARCOMA [None]
  - LYMPHOMA [None]
  - MALLORY-WEISS SYNDROME [None]
  - PERITONITIS [None]
  - SMALL INTESTINAL OBSTRUCTION [None]
